FAERS Safety Report 7079967 (Version 2)
Quarter: 2014Q3

REPORT INFORMATION
  Report Type: Spontaneous
  Country: US (occurrence: None)
  Receive Date: 20090805
  Receipt Date: 20140922
  Transmission Date: 20150326
  Serious: Yes (Hospitalization, Other)
  Sender: FDA-Public Use
  Company Number: 2009S1005927

PATIENT
  Age: 61 Year
  Sex: Male
  Weight: 130 kg

DRUGS (9)
  1. AFEDITAB [Concomitant]
  2. PHOSPHO-SODA [Suspect]
     Active Substance: SODIUM PHOSPHATE, DIBASIC\SODIUM PHOSPHATE, MONOBASIC
     Indication: COLONOSCOPY
     Dosage: 90 ML; TOTAL; PO
     Route: 048
     Dates: start: 20050919, end: 20050919
  3. MOTRIN [Concomitant]
     Active Substance: IBUPROFEN
  4. TERAZOSIN [Concomitant]
     Active Substance: TERAZOSIN\TERAZOSIN HYDROCHLORIDE
  5. ACCPRIL [Concomitant]
  6. GABAPENTIN. [Concomitant]
     Active Substance: GABAPENTIN
  7. LIPITOR [Concomitant]
     Active Substance: ATORVASTATIN CALCIUM
  8. DYAZIDE [Concomitant]
     Active Substance: HYDROCHLOROTHIAZIDE\TRIAMTERENE
  9. MONOPRIL [Concomitant]
     Active Substance: FOSINOPRIL SODIUM

REACTIONS (12)
  - Chest pain [None]
  - Cellulitis [None]
  - Squamous cell carcinoma of skin [None]
  - Tinea infection [None]
  - Basal cell carcinoma [None]
  - Nephrogenic anaemia [None]
  - Rash [None]
  - Peripheral swelling [None]
  - Benign prostatic hyperplasia [None]
  - Obstructive uropathy [None]
  - Dizziness [None]
  - Renal failure acute [None]

NARRATIVE: CASE EVENT DATE: 200511
